FAERS Safety Report 5337255-5 (Version None)
Quarter: 2007Q2

REPORT INFORMATION
  Report Type: 
  Country: None (occurrence: None)
  Receive Date: 20070529
  Receipt Date: 20070522
  Transmission Date: 20071010
  Serious: Yes (Other)
  Sender: FDA-Public Use
  Company Number: B0463662A

PATIENT
  Age: 72 Year
  Sex: Male
  Weight: 83 kg

DRUGS (6)
  1. AVANDAMET [Suspect]
     Dosage: 2TAB PER DAY
     Route: 048
     Dates: start: 20060303, end: 20070131
  2. ACARBOSE [Concomitant]
     Route: 065
  3. MOLSIDOMINE [Concomitant]
     Indication: ANGINA PECTORIS
     Dosage: 4MG THREE TIMES PER DAY
     Route: 048
  4. ENALAPRIL MALEATE [Concomitant]
     Indication: HYPERTENSION
     Dosage: 20MG PER DAY
     Route: 048
  5. KARDEGIC [Concomitant]
     Indication: ANGINA PECTORIS
     Dosage: 75MG PER DAY
     Route: 048
  6. AMLOR [Concomitant]
     Indication: HYPERTENSION
     Dosage: 10MG PER DAY
     Route: 048

REACTIONS (3)
  - HAEMATOCRIT DECREASED [None]
  - NORMOCHROMIC NORMOCYTIC ANAEMIA [None]
  - RETICULOCYTE COUNT DECREASED [None]
